FAERS Safety Report 6045708-X (Version None)
Quarter: 2009Q1

REPORT INFORMATION
  Report Type: 
  Country: None (occurrence: None)
  Receive Date: 20090121
  Receipt Date: 20090116
  Transmission Date: 20090719
  Serious: Yes (Other)
  Sender: FDA-Public Use
  Company Number: GB-WYE-G02951309

PATIENT
  Age: 19 Year
  Sex: Female
  Weight: 46 kg

DRUGS (7)
  1. TAZOCIN [Suspect]
     Indication: BRONCHIOLITIS
     Dosage: 4.5 G FREQUENCY UNKNOWN
     Route: 042
     Dates: start: 20081125, end: 20081125
  2. FERROUS SULFATE TAB [Concomitant]
     Dosage: 200 MG FREQUENCY UNKNOWN
     Route: 048
  3. VALPROIC ACID [Concomitant]
     Dosage: UNKNOWN DOSE 2 TIMES DAILY
  4. LAMOTRIGINE [Concomitant]
     Dosage: 100 MG FREQUENCY UNKNOWN
  5. SERTRALINE [Concomitant]
     Dosage: 2.5 MG FREQUENCY UNKNOWN
     Route: 055
  6. DOMPERIDONE [Concomitant]
     Dosage: 10 MG FREQUENCY UNKNOWN
     Route: 048
  7. FLUDROCORTISONE ACETATE [Concomitant]
     Route: 048

REACTIONS (5)
  - BLOOD PRESSURE FLUCTUATION [None]
  - CHEST DISCOMFORT [None]
  - NAUSEA [None]
  - SWELLING FACE [None]
  - URTICARIA [None]
